FAERS Safety Report 8227692-3 (Version None)
Quarter: 2012Q1

REPORT INFORMATION
  Report Type: 
  Country: None (occurrence: None)
  Receive Date: 20120322
  Receipt Date: 20120320
  Transmission Date: 20120608
  Serious: No
  Sender: FDA-Public Use
  Company Number: US-PFIZER INC-2012034279

PATIENT
  Sex: Female
  Weight: 77.098 kg

DRUGS (1)
  1. IBUPROFEN (ADVIL) [Suspect]
     Indication: MYALGIA
     Dosage: 400 MG, UNK
     Route: 048
     Dates: start: 20110301, end: 20110101

REACTIONS (1)
  - DRUG INEFFECTIVE [None]
